FAERS Safety Report 7141270-9 (Version None)
Quarter: 2010Q4

REPORT INFORMATION
  Report Type: 
  Country: None (occurrence: None)
  Receive Date: 20101207
  Receipt Date: 20101130
  Transmission Date: 20110411
  Serious: Yes (Hospitalization)
  Sender: FDA-Public Use
  Company Number: SE-BRISTOL-MYERS SQUIBB COMPANY-15361512

PATIENT
  Age: 62 Year
  Sex: Female
  Weight: 62 kg

DRUGS (20)
  1. CISPLATIN [Suspect]
     Indication: NON-SMALL CELL LUNG CANCER
     Route: 042
     Dates: start: 20101006, end: 20101006
  2. PEMETREXED DISODIUM [Suspect]
     Indication: NON-SMALL CELL LUNG CANCER
     Dosage: VIAL;
     Route: 042
     Dates: start: 20101006, end: 20101006
  3. BEVACIZUMAB [Suspect]
     Indication: NON-SMALL CELL LUNG CANCER
     Route: 042
     Dates: start: 20101006, end: 20101006
  4. FOLIC ACID [Concomitant]
     Dates: start: 20100928
  5. VITAMIN B-12 [Concomitant]
     Dates: start: 20100928
  6. DEXAMETHASONE [Concomitant]
     Dates: start: 20101005, end: 20101007
  7. IMOVANE [Concomitant]
     Dates: start: 20100914
  8. OXYNORM [Concomitant]
     Dates: start: 20100923
  9. PROPAVAN [Concomitant]
     Dates: start: 20100923
  10. DEXOFEN [Concomitant]
     Dates: start: 20100923
  11. MOLLIPECT [Concomitant]
     Dates: start: 20100929
  12. OXASCAND [Concomitant]
     Dates: start: 20100929
  13. SELOKEN [Concomitant]
     Dates: start: 20101006
  14. TROMBYL [Concomitant]
     Dates: start: 20101007
  15. TRIMETHOPRIM [Concomitant]
     Dates: start: 20101008, end: 20101018
  16. AMIMOX [Concomitant]
     Dates: start: 20101015, end: 20101029
  17. DEXTROPROPOXYPHENE NAPSILATE [Concomitant]
  18. ETHANOL [Concomitant]
  19. POLYSORBATE 20 [Concomitant]
  20. EPHEDRINE HYDROCHLORIDE [Concomitant]

REACTIONS (3)
  - ATRIAL FIBRILLATION [None]
  - DEHYDRATION [None]
  - THROMBOSIS [None]
